FAERS Safety Report 9761030 (Version 1)
Quarter: 2013Q4

REPORT INFORMATION
  Report Type: Report from Study
  Country: DE (occurrence: DE)
  Receive Date: 20131216
  Receipt Date: 20131216
  Transmission Date: 20140711
  Serious: Yes (Hospitalization)
  Sender: FDA-Public Use
  Company Number: DE-ABBVIE-13P-062-1178168-00

PATIENT
  Age: 64 Year
  Sex: Female
  Weight: 63 kg

DRUGS (3)
  1. HUMIRA [Suspect]
     Indication: PSORIATIC ARTHROPATHY
     Route: 058
     Dates: start: 200911, end: 201310
  2. METHOTREXATE [Concomitant]
     Indication: PSORIATIC ARTHROPATHY
     Dates: start: 200201
  3. DICLOFENAC [Concomitant]
     Indication: PSORIATIC ARTHROPATHY

REACTIONS (1)
  - Spinal disorder [Recovered/Resolved]
